FAERS Safety Report 7771585-2 (Version None)
Quarter: 2011Q3

REPORT INFORMATION
  Report Type: 
  Country: None (occurrence: None)
  Receive Date: 20110922
  Receipt Date: 20101025
  Transmission Date: 20111222
  Serious: Yes (Hospitalization, Other)
  Sender: FDA-Public Use
  Company Number: US-ASTRAZENECA-2010SE39528

PATIENT
  Age: 46 Year
  Sex: Female
  Weight: 71.2 kg

DRUGS (9)
  1. LEXAPRO [Concomitant]
     Route: 048
  2. SEROQUEL XR [Suspect]
     Dosage: THE PATIENT WAS TAPERED OFF SEROQUEL
     Route: 048
     Dates: start: 20100823
  3. LEXAPRO [Concomitant]
     Indication: ANXIETY
     Route: 048
  4. ESTARTEST [Concomitant]
     Indication: POSTMENOPAUSE
  5. ATIVAN [Concomitant]
     Indication: ANXIETY
     Route: 048
  6. VICOPROFEN [Concomitant]
     Indication: PAIN
     Dosage: AS NEEDED
  7. SEROQUEL XR [Suspect]
     Indication: BIPOLAR I DISORDER
     Route: 048
     Dates: start: 20091110
  8. SEROQUEL XR [Suspect]
     Dosage: 300 MG AT NIGHT, PRESCRIBED TABLET ONCE DAILY, BUT HAS BEEN SPLITTING AND TAKING THROUGHOUT DAY
     Route: 048
  9. ATIVAN [Concomitant]
     Route: 048

REACTIONS (10)
  - LIPIDS ABNORMAL [None]
  - FATIGUE [None]
  - ABDOMINAL PAIN [None]
  - PAIN [None]
  - LOW DENSITY LIPOPROTEIN INCREASED [None]
  - BLOOD CREATINE PHOSPHOKINASE INCREASED [None]
  - TREMOR [None]
  - WRONG TECHNIQUE IN DRUG USAGE PROCESS [None]
  - DYSPNOEA [None]
  - MUSCLE SPASMS [None]
